FAERS Safety Report 12253896 (Version 3)
Quarter: 2020Q1

REPORT INFORMATION
  Report Type: Spontaneous
  Country: US (occurrence: US)
  Receive Date: 20160411
  Receipt Date: 20200117
  Transmission Date: 20200409
  Serious: Yes (Other)
  Sender: FDA-Public Use
  Company Number: US-PFIZER INC-2016202361

PATIENT
  Age: 54 Year
  Sex: Male

DRUGS (14)
  1. VIAGRA [Suspect]
     Active Substance: SILDENAFIL CITRATE
     Dosage: 100 MG, 2X/WEEK
     Route: 048
     Dates: start: 2011, end: 2014
  2. VIAGRA [Suspect]
     Active Substance: SILDENAFIL CITRATE
     Indication: ERECTILE DYSFUNCTION
     Dosage: UNK (REGULARLY)
     Route: 048
     Dates: start: 2000, end: 201106
  3. VITAMIN C [Concomitant]
     Active Substance: ASCORBIC ACID
     Indication: ROUTINE HEALTH MAINTENANCE
     Dosage: UNK
     Dates: start: 2014
  4. VIAGRA [Suspect]
     Active Substance: SILDENAFIL CITRATE
     Dosage: 100 MG, 2X/WEEK
     Route: 048
     Dates: start: 1998, end: 2011
  5. COQ10 [Concomitant]
     Active Substance: UBIDECARENONE
     Indication: ROUTINE HEALTH MAINTENANCE
     Dosage: UNK
     Dates: start: 2014
  6. ATORVASTATIN [Concomitant]
     Active Substance: ATORVASTATIN
     Indication: BLOOD CHOLESTEROL ABNORMAL
     Dosage: UNK
     Dates: start: 2019
  7. ELIQUIS [Concomitant]
     Active Substance: APIXABAN
     Indication: THROMBOSIS
     Dosage: UNK
     Dates: start: 2019
  8. ELIQUIS [Concomitant]
     Active Substance: APIXABAN
     Indication: CEREBROVASCULAR ACCIDENT
  9. BABY ASPIRIN [Concomitant]
     Active Substance: ASPIRIN
     Indication: CARDIOVASCULAR EVENT PROPHYLAXIS
     Dosage: UNK
     Dates: start: 2019
  10. OMEPRAZOLE. [Concomitant]
     Active Substance: OMEPRAZOLE
     Indication: GASTROOESOPHAGEAL REFLUX DISEASE
     Dosage: UNK
     Dates: start: 2014
  11. METOPROLOL TARTRATE. [Concomitant]
     Active Substance: METOPROLOL TARTRATE
     Indication: BLOOD PRESSURE ABNORMAL
     Dosage: UNK
     Dates: start: 2019
  12. XIGDUO XR [Concomitant]
     Active Substance: DAPAGLIFLOZIN PROPANEDIOL\METFORMIN HYDROCHLORIDE
     Indication: TYPE 2 DIABETES MELLITUS
     Dosage: UNK
     Dates: start: 2019
  13. VITAMIN B12 [Concomitant]
     Active Substance: CYANOCOBALAMIN
     Indication: ROUTINE HEALTH MAINTENANCE
     Dosage: UNK
     Dates: start: 2014
  14. VITAMIN D3 [Concomitant]
     Active Substance: CHOLECALCIFEROL
     Indication: ROUTINE HEALTH MAINTENANCE
     Dosage: UNK
     Dates: start: 2014

REACTIONS (4)
  - Superficial spreading melanoma stage unspecified [Unknown]
  - Emotional distress [Unknown]
  - Malignant melanoma in situ [Unknown]
  - Anxiety [Unknown]

NARRATIVE: CASE EVENT DATE: 20070612
